FAERS Safety Report 5509200-0 (Version None)
Quarter: 2007Q4

REPORT INFORMATION
  Report Type: 
  Country: None (occurrence: None)
  Receive Date: 20071031
  Receipt Date: 20070628
  Transmission Date: 20080405
  Serious: No
  Sender: FDA-Public Use
  Company Number: 2007PV033075

PATIENT
  Age: 54 Year
  Sex: Female

DRUGS (8)
  1. SYMLIN [Suspect]
     Indication: TYPE 2 DIABETES MELLITUS
     Dosage: 30 MCG;TID;SC
     Route: 058
     Dates: start: 20070628
  2. LANTUS [Concomitant]
  3. HUMALOG [Concomitant]
  4. ZANTAC [Concomitant]
  5. MEGACE [Concomitant]
  6. HYDROCORTISONE [Concomitant]
  7. FLORINEF [Concomitant]
  8. ASPIRIN [Concomitant]

REACTIONS (1)
  - FREQUENT BOWEL MOVEMENTS [None]
